FAERS Safety Report 15501057 (Version 2)
Quarter: 2019Q2

REPORT INFORMATION
  Report Type: Other
  Country: CA (occurrence: CA)
  Receive Date: 20181015
  Receipt Date: 20190412
  Transmission Date: 20190711
  Serious: Yes (Hospitalization, Other)
  Sender: FDA-Public Use
  Company Number: CA-PFIZER INC-2018409822

PATIENT
  Age: 55 Year
  Sex: Female

DRUGS (19)
  1. HYDROMORPHONE HCL [Interacting]
     Active Substance: HYDROMORPHONE HYDROCHLORIDE
     Indication: PAIN
     Dosage: UNK
     Route: 065
  2. DESMOPRESSIN [Interacting]
     Active Substance: DESMOPRESSIN
     Dosage: 0.4 MG, 2X/DAY
     Route: 048
  3. DOMPERIDONE [Concomitant]
     Active Substance: DOMPERIDONE
     Dosage: UNK
  4. IPRATROPIUM [Concomitant]
     Active Substance: IPRATROPIUM
     Dosage: UNK
  5. HYDROMORPHONE HYDROCHLORIDE. [Suspect]
     Active Substance: HYDROMORPHONE HYDROCHLORIDE
     Indication: PAIN
     Dosage: UNK, AS NEEDED
     Route: 058
  6. DESMOPRESSIN [Interacting]
     Active Substance: DESMOPRESSIN
     Indication: PRODUCT USED FOR UNKNOWN INDICATION
     Dosage: UNK
     Route: 045
  7. DESMOPRESSIN [Interacting]
     Active Substance: DESMOPRESSIN
     Dosage: 0.8 MG, 2X/DAY
     Route: 048
  8. RABEPRAZOLE [Concomitant]
     Active Substance: RABEPRAZOLE
     Dosage: UNK
  9. DESMOPRESSIN [Interacting]
     Active Substance: DESMOPRESSIN
     Dosage: 0.8 MG, 3X/DAY
     Route: 048
  10. HYDROCORTISONE. [Concomitant]
     Active Substance: HYDROCORTISONE
     Dosage: UNK
  11. DESMOPRESSIN [Interacting]
     Active Substance: DESMOPRESSIN
     Indication: DIABETES INSIPIDUS
     Dosage: 10 UG, EVERY 4 HOURS
     Route: 045
  12. DESMOPRESSIN [Interacting]
     Active Substance: DESMOPRESSIN
     Dosage: 0.6 MG, 2X/DAY
     Route: 048
  13. SALBUTAMOL [Concomitant]
     Active Substance: ALBUTEROL
     Dosage: UNK
  14. SYMBICORT [Concomitant]
     Active Substance: BUDESONIDE\FORMOTEROL FUMARATE DIHYDRATE
     Dosage: UNK
  15. DESMOPRESSIN [Interacting]
     Active Substance: DESMOPRESSIN
     Dosage: 0.7 MG, UNK
     Route: 048
  16. DICLOFENAC/MISOPROSTOL [Concomitant]
     Active Substance: DICLOFENAC SODIUM\MISOPROSTOL
     Dosage: UNK
  17. LEVOTHYROXINE. [Concomitant]
     Active Substance: LEVOTHYROXINE
     Dosage: UNK
  18. PREDNISONE. [Concomitant]
     Active Substance: PREDNISONE
     Dosage: UNK
  19. VASOPRESSIN INJECTION [Concomitant]
     Active Substance: VASOPRESSIN
     Dosage: UNK

REACTIONS (2)
  - Hyponatraemia [Unknown]
  - Drug interaction [Unknown]
